FAERS Safety Report 5879491-5 (Version None)
Quarter: 2008Q3

REPORT INFORMATION
  Report Type: 
  Country: None (occurrence: None)
  Receive Date: 20080911
  Receipt Date: 20080911
  Transmission Date: 20090109
  Serious: No
  Sender: FDA-Public Use
  Company Number: None

PATIENT
  Age: 36 Year
  Sex: Female

DRUGS (1)
  1. GADOBENATE DIMEGLUMINE BRACCO DIAGNOSTICS [Suspect]
     Indication: SCAN WITH CONTRAST
     Dosage: IV
     Route: 042
     Dates: start: 20080905, end: 20080905

REACTIONS (3)
  - NAUSEA [None]
  - RETCHING [None]
  - VOMITING [None]
